FAERS Safety Report 25211329 (Version 1)
Quarter: 2025Q2

REPORT INFORMATION
  Report Type: Report from Study
  Country: US (occurrence: US)
  Receive Date: 20250417
  Receipt Date: 20250417
  Transmission Date: 20250717
  Serious: Yes (Hospitalization, Other)
  Sender: ABBVIE
  Company Number: US-ABBVIE-6190057

PATIENT
  Age: 63 Year
  Sex: Female

DRUGS (2)
  1. RINVOQ [Suspect]
     Active Substance: UPADACITINIB
     Indication: Rheumatoid arthritis
     Dosage: FORM STRENGTH: 15 MILLIGRAM
     Route: 048
     Dates: start: 202411
  2. RINVOQ [Suspect]
     Active Substance: UPADACITINIB
     Indication: Rheumatoid arthritis
     Route: 048

REACTIONS (11)
  - Coronary artery occlusion [Unknown]
  - Spinal fracture [Not Recovered/Not Resolved]
  - Spinal stenosis [Recovering/Resolving]
  - Myocardial infarction [Recovered/Resolved]
  - Cardiomegaly [Recovering/Resolving]
  - Osteosclerosis [Recovering/Resolving]
  - Back pain [Recovering/Resolving]
  - Compression fracture [Recovering/Resolving]
  - Pneumonia [Recovered/Resolved]
  - Chest discomfort [Recovering/Resolving]
  - Chronic obstructive pulmonary disease [Unknown]

NARRATIVE: CASE EVENT DATE: 20241201
